FAERS Safety Report 10595041 (Version 4)
Quarter: 2014Q4

REPORT INFORMATION
  Report Type: Report from Study
  Country: JP (occurrence: JP)
  Receive Date: 20141120
  Receipt Date: 20141218
  Transmission Date: 20150529
  Serious: Yes (Life-Threatening, Hospitalization, Other)
  Sender: FDA-Public Use
  Company Number: PHHY2014JP141314

PATIENT
  Age: 57 Year
  Sex: Female

DRUGS (59)
  1. CLOZARIL [Suspect]
     Active Substance: CLOZAPINE
     Dosage: 375 MG, QD
     Route: 048
     Dates: start: 20140207, end: 20140224
  2. CLOZARIL [Suspect]
     Active Substance: CLOZAPINE
     Dosage: 350 MG, QD
     Route: 048
     Dates: start: 20140225, end: 20140331
  3. CLOZARIL [Suspect]
     Active Substance: CLOZAPINE
     Dosage: 375 MG, QD
     Route: 048
     Dates: start: 20140404, end: 20140417
  4. CLOZARIL [Suspect]
     Active Substance: CLOZAPINE
     Dosage: 387.5 MG, QD
     Route: 048
     Dates: start: 20140418, end: 20140421
  5. SERENACE [Concomitant]
     Active Substance: HALOPERIDOL
     Dosage: 3 MG, UNK
     Route: 048
     Dates: end: 20131030
  6. RISPERDAL [Concomitant]
     Active Substance: RISPERIDONE
     Dosage: 6 MG, UNK
     Route: 048
  7. AKINETON [Concomitant]
     Active Substance: BIPERIDEN HYDROCHLORIDE
     Dosage: 0.25 MG, UNK
     Route: 048
     Dates: end: 20140306
  8. CLOZARIL [Suspect]
     Active Substance: CLOZAPINE
     Dosage: 125 MG, QD
     Route: 048
     Dates: start: 20131115, end: 20131118
  9. CLOZARIL [Suspect]
     Active Substance: CLOZAPINE
     Dosage: 250 MG, QD
     Route: 048
     Dates: start: 20131206, end: 20131212
  10. SERENACE [Concomitant]
     Active Substance: HALOPERIDOL
     Indication: PRODUCT USED FOR UNKNOWN INDICATION
     Dosage: 18 MG, UNK
     Route: 048
     Dates: start: 20131011
  11. RISPERDAL [Concomitant]
     Active Substance: RISPERIDONE
     Indication: PRODUCT USED FOR UNKNOWN INDICATION
     Dosage: 12 MG, UNK
     Route: 048
  12. SILECE [Concomitant]
     Active Substance: FLUNITRAZEPAM
     Indication: SCHIZOPHRENIA, PARANOID TYPE
     Dosage: 1.5 MG, UNK
     Route: 048
     Dates: start: 20131203
  13. SILECE [Concomitant]
     Active Substance: FLUNITRAZEPAM
     Dosage: 0.5 MG, UNK
     Route: 048
     Dates: end: 20140116
  14. AKINETON [Concomitant]
     Active Substance: BIPERIDEN HYDROCHLORIDE
     Indication: PROPHYLAXIS
     Dosage: 3 MG, UNK
     Route: 048
  15. AKINETON [Concomitant]
     Active Substance: BIPERIDEN HYDROCHLORIDE
     Dosage: 5 MG, UNK
     Route: 048
  16. AKINETON [Concomitant]
     Active Substance: BIPERIDEN HYDROCHLORIDE
     Dosage: 4.5 MG, UNK
     Route: 048
  17. AKINETON [Concomitant]
     Active Substance: BIPERIDEN HYDROCHLORIDE
     Dosage: 4 MG, UNK
     Route: 048
  18. AKINETON [Concomitant]
     Active Substance: BIPERIDEN HYDROCHLORIDE
     Dosage: 3.5 MG, UNK
     Route: 048
  19. CLOZARIL [Suspect]
     Active Substance: CLOZAPINE
     Dosage: 25 MG, QD
     Route: 048
     Dates: start: 20131101, end: 20131104
  20. CLOZARIL [Suspect]
     Active Substance: CLOZAPINE
     Dosage: 100 MG, QD
     Route: 048
     Dates: start: 20131112, end: 20131114
  21. LINTON [Concomitant]
     Active Substance: HALOPERIDOL
     Indication: PRODUCT USED FOR UNKNOWN INDICATION
     Dosage: 21 MG, UNK
     Route: 048
     Dates: end: 20131010
  22. RISPERDAL [Concomitant]
     Active Substance: RISPERIDONE
     Dosage: 10 MG, UNK
     Route: 048
  23. RISPERDAL [Concomitant]
     Active Substance: RISPERIDONE
     Dosage: 8 MG, UNK
     Route: 048
  24. RISPERDAL [Concomitant]
     Active Substance: RISPERIDONE
     Dosage: 1 MG, UNK
     Route: 048
     Dates: end: 20131124
  25. MAGMITT [Concomitant]
     Active Substance: MAGNESIUM OXIDE
     Dosage: 1050 MG, UNK
     Route: 048
  26. MAGMITT [Concomitant]
     Active Substance: MAGNESIUM OXIDE
     Dosage: 1320 MG, UNK
     Route: 048
  27. FLOMOX//CEFCAPENE PIVOXIL HYDROCHLORIDE [Concomitant]
     Active Substance: CEFCAPENE PIVOXIL HYDROCHLORIDE HYDRATE
     Indication: PROPHYLAXIS
     Dosage: 300 MG, UNK
     Route: 048
     Dates: start: 20140401, end: 20140403
  28. CLOZARIL [Suspect]
     Active Substance: CLOZAPINE
     Indication: SCHIZOPHRENIA, PARANOID TYPE
     Dosage: 12.5 MG, QD
     Route: 048
     Dates: start: 20131031, end: 20131031
  29. CLOZARIL [Suspect]
     Active Substance: CLOZAPINE
     Dosage: 200 MG, QD
     Route: 048
     Dates: start: 20131128, end: 20131205
  30. CLOZARIL [Suspect]
     Active Substance: CLOZAPINE
     Dosage: 350 MG, QD
     Route: 048
     Dates: start: 20140110, end: 20140206
  31. CLOZARIL [Suspect]
     Active Substance: CLOZAPINE
     Dosage: 362.5 MG, QD
     Route: 048
     Dates: start: 20140401, end: 20140403
  32. SERENACE [Concomitant]
     Active Substance: HALOPERIDOL
     Dosage: 9 MG, UNK
     Route: 048
  33. AKINETON [Concomitant]
     Active Substance: BIPERIDEN HYDROCHLORIDE
     Dosage: 6 MG, UNK
     Route: 048
  34. AKINETON [Concomitant]
     Active Substance: BIPERIDEN HYDROCHLORIDE
     Dosage: 3 MG, UNK
     Route: 048
  35. AKINETON [Concomitant]
     Active Substance: BIPERIDEN HYDROCHLORIDE
     Dosage: 2 MG, UNK
     Route: 048
  36. AKINETON [Concomitant]
     Active Substance: BIPERIDEN HYDROCHLORIDE
     Dosage: 0.5 MG, UNK
     Route: 048
  37. CLOZARIL [Suspect]
     Active Substance: CLOZAPINE
     Dosage: 75 MG, QD
     Route: 048
     Dates: start: 20131109, end: 20131111
  38. CLOZARIL [Suspect]
     Active Substance: CLOZAPINE
     Dosage: 175 MG, QD
     Route: 048
     Dates: start: 20131123, end: 20131127
  39. CLOZARIL [Suspect]
     Active Substance: CLOZAPINE
     Dosage: 300 MG, QD
     Route: 048
     Dates: start: 20131213, end: 20140109
  40. ZYPREXA [Concomitant]
     Active Substance: OLANZAPINE
     Indication: PRODUCT USED FOR UNKNOWN INDICATION
     Dosage: 10 MG, UNK
     Route: 048
  41. ZYPREXA [Concomitant]
     Active Substance: OLANZAPINE
     Dosage: 5 MG, UNK
     Route: 048
     Dates: end: 20131030
  42. RISPERDAL [Concomitant]
     Active Substance: RISPERIDONE
     Dosage: 11 MG, UNK
     Route: 048
  43. AKINETON [Concomitant]
     Active Substance: BIPERIDEN HYDROCHLORIDE
     Dosage: 5.5 MG, UNK
     Route: 048
  44. AKINETON [Concomitant]
     Active Substance: BIPERIDEN HYDROCHLORIDE
     Dosage: 1.5 MG, UNK
     Route: 048
  45. AKINETON [Concomitant]
     Active Substance: BIPERIDEN HYDROCHLORIDE
     Dosage: 1 MG, UNK
     Route: 048
  46. MAGMITT [Concomitant]
     Active Substance: MAGNESIUM OXIDE
     Dosage: 1970 MG, UNK
     Route: 048
  47. CLOZARIL [Suspect]
     Active Substance: CLOZAPINE
     Dosage: 50 MG, QD
     Route: 048
     Dates: start: 20131105, end: 20131108
  48. SERENACE [Concomitant]
     Active Substance: HALOPERIDOL
     Dosage: 12 MG, UNK
     Route: 048
  49. MYSLEE [Concomitant]
     Active Substance: ZOLPIDEM TARTRATE
     Indication: SCHIZOPHRENIA, PARANOID TYPE
     Dosage: 5 MG, UNK
     Route: 048
     Dates: end: 20140126
  50. MAGMITT [Concomitant]
     Active Substance: MAGNESIUM OXIDE
     Indication: PROPHYLAXIS
     Dosage: 990 MG, UNK
     Route: 048
  51. SERENACE [Concomitant]
     Active Substance: HALOPERIDOL
     Dosage: 15 MG, UNK
     Route: 048
  52. SERENACE [Concomitant]
     Active Substance: HALOPERIDOL
     Dosage: 6 MG, UNK
     Route: 048
  53. SILECE [Concomitant]
     Active Substance: FLUNITRAZEPAM
     Dosage: 1 MG, UNK
     Route: 048
  54. AKINETON [Concomitant]
     Active Substance: BIPERIDEN HYDROCHLORIDE
     Dosage: 5 MG, UNK
     Route: 048
  55. AKINETON [Concomitant]
     Active Substance: BIPERIDEN HYDROCHLORIDE
     Dosage: 2.5 MG, UNK
     Route: 048
     Dates: end: 20140130
  56. CLOZARIL [Suspect]
     Active Substance: CLOZAPINE
     Dosage: 150 MG, QD
     Route: 048
     Dates: start: 20131119, end: 20131122
  57. CLOZARIL [Suspect]
     Active Substance: CLOZAPINE
     Dosage: 400 MG, QD
     Route: 048
     Dates: start: 20140422
  58. RISPERDAL [Concomitant]
     Active Substance: RISPERIDONE
     Dosage: 3 MG, UNK
     Route: 048
  59. ROHYPNOL [Concomitant]
     Active Substance: FLUNITRAZEPAM
     Indication: SCHIZOPHRENIA, PARANOID TYPE
     Dosage: 2 MG, UNK
     Route: 048
     Dates: end: 20131202

REACTIONS (9)
  - Haematocrit decreased [Not Recovered/Not Resolved]
  - White blood cell count decreased [Recovered/Resolved]
  - Pyrexia [Recovered/Resolved]
  - Gastritis [Recovered/Resolved]
  - Dizziness [Recovering/Resolving]
  - Haemoglobin decreased [Not Recovered/Not Resolved]
  - Heart rate increased [Recovered/Resolved]
  - Blood pressure decreased [Recovered/Resolved]
  - Constipation [Recovered/Resolved]

NARRATIVE: CASE EVENT DATE: 20131118
